FAERS Safety Report 11492603 (Version 1)
Quarter: 2015Q3

REPORT INFORMATION
  Report Type: Report from Study
  Country: CL (occurrence: CL)
  Receive Date: 20150910
  Receipt Date: 20150910
  Transmission Date: 20151125
  Serious: Yes (Other)
  Sender: FDA-Public Use
  Company Number: CL-TEVA-592021ISR

PATIENT
  Age: 24 Year
  Sex: Male

DRUGS (1)
  1. ASICOT [Suspect]
     Active Substance: QUETIAPINE
     Route: 048

REACTIONS (4)
  - Loss of consciousness [Recovered/Resolved]
  - Tonic clonic movements [Recovered/Resolved]
  - Hyperhidrosis [None]
  - Bradycardia [None]

NARRATIVE: CASE EVENT DATE: 20150906
